FAERS Safety Report 18689839 (Version 1)
Quarter: 2020Q4

REPORT INFORMATION
  Report Type: Report from Study
  Country: US (occurrence: US)
  Receive Date: 20201231
  Receipt Date: 20201231
  Transmission Date: 20210114
  Serious: Yes (Other)
  Sender: FDA-Public Use
  Company Number: US-ASTRAZENECA-2020SF74110

PATIENT
  Sex: Female

DRUGS (1)
  1. LYNPARZA [Suspect]
     Active Substance: OLAPARIB
     Indication: OVARIAN CANCER
     Route: 048
     Dates: start: 20200701

REACTIONS (5)
  - Constipation [Unknown]
  - Fatigue [Not Recovered/Not Resolved]
  - Dysgeusia [Unknown]
  - Carbohydrate antigen 125 increased [Unknown]
  - Dyspnoea [Unknown]
